FAERS Safety Report 11783696 (Version 7)
Quarter: 2017Q3

REPORT INFORMATION
  Report Type: Report from Study
  Country: BR (occurrence: BR)
  Receive Date: 20151127
  Receipt Date: 20170713
  Transmission Date: 20171127
  Serious: Yes (Other)
  Sender: FDA-Public Use
  Company Number: PHHY2015BR074158

PATIENT
  Age: 50 Year
  Sex: Female
  Weight: 59 kg

DRUGS (20)
  1. EUTIROX [Concomitant]
     Active Substance: LEVOTHYROXINE SODIUM
     Indication: HYPOTHYROIDISM
     Dosage: 1 DF, QD
     Route: 048
  2. MOTILIUM [Concomitant]
     Active Substance: DOMPERIDONE
     Indication: GASTROOESOPHAGEAL REFLUX DISEASE
     Dosage: 3 DF, QD
     Route: 048
  3. OMEPRAZOL//OMEPRAZOLE [Concomitant]
     Active Substance: OMEPRAZOLE
     Indication: GASTROOESOPHAGEAL REFLUX DISEASE
     Dosage: 2 DF, QD
     Route: 048
  4. AEROLIN [Concomitant]
     Active Substance: ALBUTEROL
     Indication: ASTHMA
     Dosage: UNK, PRN
     Route: 055
  5. SINGULAIR [Concomitant]
     Active Substance: MONTELUKAST SODIUM
     Indication: ASTHMA
     Dosage: 2 DF, QD
     Route: 065
  6. OXIMAX [Concomitant]
     Active Substance: MOMETASONE FUROATE
     Indication: ASTHMA
     Dosage: 400 UG, BID
     Route: 055
  7. XOLAIR [Suspect]
     Active Substance: OMALIZUMAB
     Dosage: EVERY 15 DAYS
     Route: 065
     Dates: start: 20151104
  8. PREDNISONE. [Concomitant]
     Active Substance: PREDNISONE
     Indication: ASTHMA
     Dosage: 1 DF, QD
     Route: 048
  9. XOLAIR [Suspect]
     Active Substance: OMALIZUMAB
     Dosage: EVERY 15 DAYS
     Route: 065
     Dates: start: 20151118
  10. EXJADE [Suspect]
     Active Substance: DEFERASIROX
     Indication: PRODUCT USED FOR UNKNOWN INDICATION
     Route: 065
     Dates: start: 201502
  11. BAMIFIX [Concomitant]
     Active Substance: BAMIFYLLINE HYDROCHLORIDE
     Indication: ASTHMA
     Dosage: 2 DF, QD
     Route: 048
  12. XOLAIR [Suspect]
     Active Substance: OMALIZUMAB
     Dosage: EVERY 15 DAYS
     Route: 065
     Dates: start: 20151015
  13. SPIRIVA [Concomitant]
     Active Substance: TIOTROPIUM BROMIDE MONOHYDRATE
     Indication: ASTHMA
     Dosage: 1 DF, UNK
     Route: 055
  14. FOSTER [Concomitant]
     Active Substance: BECLOMETHASONE\FORMOTEROL
     Indication: ASTHMA
     Dosage: 1 DF, BID (6/100 MG)
     Route: 055
  15. EUTHYROX [Concomitant]
     Active Substance: LEVOTHYROXINE SODIUM
     Indication: HYPERTHYROIDISM
     Dosage: 1 DF, QD
     Route: 048
  16. RELVAR ELLIPTA [Concomitant]
     Active Substance: FLUTICASONE FUROATE\VILANTEROL TRIFENATATE
     Indication: ASTHMA
     Dosage: 1 DF, QD
     Route: 055
  17. XOLAIR [Suspect]
     Active Substance: OMALIZUMAB
     Indication: ASTHMA
     Dosage: 450 MG, BIW
     Route: 058
     Dates: start: 20150204
  18. XOLAIR [Suspect]
     Active Substance: OMALIZUMAB
     Dosage: 2 DF (AMPOULES), EVERY 15 DAYS
     Route: 065
  19. XOLAIR [Suspect]
     Active Substance: OMALIZUMAB
     Dosage: 3 DF, UNK
     Route: 065
  20. XOLAIR [Suspect]
     Active Substance: OMALIZUMAB
     Dosage: 3 DF, UNK
     Route: 065

REACTIONS (17)
  - Dysentery [Unknown]
  - Blood immunoglobulin E increased [Not Recovered/Not Resolved]
  - Pyrexia [Recovered/Resolved]
  - Asthma [Recovered/Resolved]
  - Anaemia [Unknown]
  - Spinal disorder [Unknown]
  - Blood test abnormal [Unknown]
  - Asthenia [Recovering/Resolving]
  - Diarrhoea [Recovered/Resolved]
  - Dengue fever [Recovered/Resolved]
  - Malaise [Recovered/Resolved]
  - Aphonia [Recovered/Resolved]
  - Asthma [Recovering/Resolving]
  - Asthmatic crisis [Unknown]
  - Platelet count decreased [Recovered/Resolved]
  - Dyspnoea [Recovering/Resolving]
  - Vomiting [Recovered/Resolved]

NARRATIVE: CASE EVENT DATE: 2015
